FAERS Safety Report 8030137-X (Version None)
Quarter: 2011Q4

REPORT INFORMATION
  Report Type: 
  Country: None (occurrence: None)
  Receive Date: 20111130
  Receipt Date: 20110523
  Transmission Date: 20120403
  Serious: Yes (Other)
  Sender: FDA-Public Use
  Company Number: US201002003756

PATIENT
  Sex: Female

DRUGS (7)
  1. LISINOPRIL [Concomitant]
  2. EXENATIDE UNK STRENGTH PEN, DISPOSABLE DEVCIE (EXENATIDE PEN (UNKNOWN [Concomitant]
  3. AMARYL [Concomitant]
  4. BYETTA [Suspect]
     Indication: TYPE 2 DIABETES MELLITUS
     Dosage: 5 UG, BID ; 10 UG, BID
     Dates: start: 20070723
  5. BYETTA [Suspect]
     Indication: TYPE 2 DIABETES MELLITUS
     Dosage: 5 UG, BID ; 10 UG, BID
     Dates: end: 20090201
  6. METFORMIN (METFORMNI) [Concomitant]
  7. LIPITOR [Concomitant]

REACTIONS (2)
  - ALOPECIA [None]
  - PANCREATITIS [None]
